FAERS Safety Report 6442133-4 (Version None)
Quarter: 2009Q4

REPORT INFORMATION
  Report Type: 
  Country: None (occurrence: None)
  Receive Date: 20091116
  Receipt Date: 20091104
  Transmission Date: 20100525
  Serious: Yes (Other)
  Sender: FDA-Public Use
  Company Number: PHHY2009AR48007

PATIENT
  Sex: Female

DRUGS (1)
  1. ACLASTA [Suspect]
     Indication: OSTEOPOROSIS
     Dosage: UNK
     Dates: start: 20091102

REACTIONS (11)
  - BLOOD PRESSURE DECREASED [None]
  - CHILLS [None]
  - DRY THROAT [None]
  - HEADACHE [None]
  - HYPERSOMNIA [None]
  - INFLUENZA [None]
  - MYALGIA [None]
  - NAUSEA [None]
  - PAIN [None]
  - PYREXIA [None]
  - THIRST [None]
